FAERS Safety Report 5941367-2 (Version None)
Quarter: 2008Q4

REPORT INFORMATION
  Report Type: 
  Country: None (occurrence: None)
  Receive Date: 20081103
  Receipt Date: 20081016
  Transmission Date: 20090506
  Serious: Yes (Other)
  Sender: FDA-Public Use
  Company Number: 230001L08FRA

PATIENT

DRUGS (1)
  1. INTERFERON BETA (INTERFERON BETA) [Suspect]
     Indication: RELAPSING-REMITTING MULTIPLE SCLEROSIS
     Dosage: SUBCUTANEOUS
     Route: 058

REACTIONS (2)
  - PANNICULITIS [None]
  - SKIN NECROSIS [None]
